FAERS Safety Report 5237274-3 (Version None)
Quarter: 2007Q1

REPORT INFORMATION
  Report Type: 
  Country: None (occurrence: None)
  Receive Date: 20070213
  Receipt Date: 20070202
  Transmission Date: 20070707
  Serious: Yes (Hospitalization)
  Sender: FDA-Public Use
  Company Number: 2007SE00578

PATIENT
  Age: 776 Month
  Sex: Female
  Weight: 70 kg

DRUGS (3)
  1. ATACAND [Suspect]
     Indication: HYPERTENSION
     Dosage: 16/12.5 MG
     Route: 048
     Dates: start: 20010804
  2. PLENDIL [Concomitant]
     Indication: HYPERTENSION
     Route: 048
     Dates: start: 19990101
  3. KLIOGEST [Concomitant]
     Indication: MENOPAUSE
     Route: 048
     Dates: start: 19990101, end: 20070101

REACTIONS (1)
  - POLYCYSTIC LIVER DISEASE [None]
